FAERS Safety Report 6393353-9 (Version None)
Quarter: 2009Q4

REPORT INFORMATION
  Report Type: 
  Country: None (occurrence: None)
  Receive Date: 20091008
  Receipt Date: 20091006
  Transmission Date: 20100525
  Serious: Yes (Death, Life-Threatening)
  Sender: FDA-Public Use
  Company Number: JP-JNJFOC-20090607376

PATIENT
  Sex: Female

DRUGS (7)
  1. ITRIZOLE [Suspect]
     Indication: BRONCHOPULMONARY ASPERGILLOSIS
     Route: 048
  2. ITRIZOLE [Suspect]
     Route: 041
  3. ITRIZOLE [Suspect]
     Indication: FUNGAL INFECTION
     Route: 041
  4. MAXIPIME [Concomitant]
     Indication: BRONCHOPULMONARY ASPERGILLOSIS
     Route: 041
  5. BAKTAR [Concomitant]
     Indication: ACUTE MYELOID LEUKAEMIA
     Route: 048
  6. ZYLORIC [Concomitant]
     Indication: ACUTE MYELOID LEUKAEMIA
     Route: 048
  7. FUNGUARD [Concomitant]
     Indication: BRONCHOPULMONARY ASPERGILLOSIS
     Route: 041

REACTIONS (5)
  - ACUTE MYELOID LEUKAEMIA [None]
  - DISSEMINATED INTRAVASCULAR COAGULATION [None]
  - IMMUNODEFICIENCY [None]
  - RENAL FAILURE ACUTE [None]
  - RESPIRATORY DISTRESS [None]
